FAERS Safety Report 15552301 (Version 3)
Quarter: 2018Q4

REPORT INFORMATION
  Report Type: Report from Study
  Country: NZ (occurrence: NZ)
  Receive Date: 20181025
  Receipt Date: 20181114
  Transmission Date: 20190205
  Serious: Yes (Other)
  Sender: FDA-Public Use
  Company Number: NZ-MYLANLABS-2018M1074528

PATIENT
  Age: 43 Year
  Sex: Female

DRUGS (2)
  1. CLOZARIL [Suspect]
     Active Substance: CLOZAPINE
     Indication: SCHIZOPHRENIA
     Dosage: UNK
     Route: 048
     Dates: start: 20180928, end: 20181016
  2. CLOZARIL [Suspect]
     Active Substance: CLOZAPINE
     Dosage: UNK
     Route: 048
     Dates: start: 20181018

REACTIONS (6)
  - Red cell distribution width decreased [Recovering/Resolving]
  - Electrocardiogram T wave inversion [Recovered/Resolved]
  - Granulocytes abnormal [Unknown]
  - Electrocardiogram T wave biphasic [Recovered/Resolved]
  - Troponin T increased [Recovered/Resolved]
  - Mean cell haemoglobin concentration abnormal [Not Recovered/Not Resolved]

NARRATIVE: CASE EVENT DATE: 2018
